FAERS Safety Report 6634002-1 (Version None)
Quarter: 2010Q1

REPORT INFORMATION
  Report Type: 
  Country: None (occurrence: None)
  Receive Date: 20100315
  Receipt Date: 20100302
  Transmission Date: 20100710
  Serious: Yes (Hospitalization)
  Sender: FDA-Public Use
  Company Number: PHHY2009JP42476

PATIENT
  Sex: Male

DRUGS (4)
  1. ZOLEDRONATE T29581+ [Suspect]
     Indication: MULTIPLE MYELOMA
     Dosage: 4 MG EVERY 3 WEEKS
     Route: 042
     Dates: start: 20070524, end: 20070705
  2. ALENDRONATE SODIUM [Suspect]
     Dosage: 5 MG EVERY TWO WEEKS
     Route: 042
     Dates: start: 20040401, end: 20070401
  3. ALKERAN [Concomitant]
     Indication: MULTIPLE MYELOMA
     Dosage: 2 MG, UNK
     Route: 048
     Dates: start: 20070712, end: 20070812
  4. PREDONINE [Concomitant]
     Indication: MULTIPLE MYELOMA
     Dosage: 10 MG, UNK
     Route: 048
     Dates: start: 20070712, end: 20070812

REACTIONS (3)
  - BONE DISORDER [None]
  - BREATH ODOUR [None]
  - OSTEONECROSIS [None]
